FAERS Safety Report 25780718 (Version 1)
Quarter: 2025Q3

REPORT INFORMATION
  Report Type: Spontaneous
  Country: EU (occurrence: EU)
  Receive Date: 20250909
  Receipt Date: 20250909
  Transmission Date: 20251021
  Serious: Yes (Hospitalization)
  Sender: PFIZER
  Company Number: None

PATIENT
  Age: 66 Year
  Sex: Male

DRUGS (2)
  1. MEROPENEM [Suspect]
     Active Substance: MEROPENEM
     Indication: Liver abscess
     Dosage: 1G, 3X/DAY
     Route: 042
     Dates: start: 20250809
  2. VANCOMYCIN [Suspect]
     Active Substance: VANCOMYCIN
     Indication: Liver abscess
     Route: 042
     Dates: start: 20250804, end: 20250829

REACTIONS (1)
  - Toxic skin eruption [Not Recovered/Not Resolved]

NARRATIVE: CASE EVENT DATE: 20250822
